FAERS Safety Report 8125897-3 (Version None)
Quarter: 2012Q1

REPORT INFORMATION
  Report Type: 
  Country: None (occurrence: None)
  Receive Date: 20120209
  Receipt Date: 20120202
  Transmission Date: 20120608
  Serious: Yes (Other)
  Sender: FDA-Public Use
  Company Number: US-ELI_LILLY_AND_COMPANY-US201110004533

PATIENT
  Sex: Female
  Weight: 99.773 kg

DRUGS (11)
  1. SYNTHROID [Concomitant]
     Dosage: 0.112 MG, QD
     Route: 048
  2. ASPIRIN [Concomitant]
     Dosage: 81 MG, QD
  3. FUROSEMIDE [Concomitant]
     Dosage: 40 MG, QD
     Route: 048
  4. LOPRESSOR [Concomitant]
     Dosage: 50 MG, BID
     Route: 048
  5. PLAVIX [Concomitant]
     Dosage: 75 MG, QD
     Route: 048
  6. PROCARDIA                          /00340701/ [Concomitant]
     Dosage: 90 MG, QD
     Route: 048
  7. GLUCOTROL [Concomitant]
     Dosage: 10 MG, BID
     Route: 048
  8. BENICAR [Concomitant]
     Dosage: 10 MG, QD
  9. HUMULIN                            /00806401/ [Concomitant]
     Dosage: 46 U, EACH EVENING
  10. HUMULIN                            /00806401/ [Concomitant]
     Dosage: 40 U, EACH MORNING
  11. BYETTA [Suspect]
     Dosage: 10 UG, BID
     Dates: start: 20100101, end: 20100701

REACTIONS (2)
  - PANCREATITIS [None]
  - CHOLELITHIASIS [None]
